FAERS Safety Report 5833437-4 (Version None)
Quarter: 2008Q3

REPORT INFORMATION
  Report Type: 
  Country: None (occurrence: None)
  Receive Date: 20080805
  Receipt Date: 20080729
  Transmission Date: 20090109
  Serious: Yes (Hospitalization)
  Sender: FDA-Public Use
  Company Number: GB-TEVA-175233ISR

PATIENT
  Age: 80 Year
  Sex: Male

DRUGS (3)
  1. PREDNISOLONE [Suspect]
     Indication: OPTIC NEUROPATHY
     Dates: start: 20080411
  2. PREDNISOLONE [Suspect]
  3. PREDNISOLONE [Suspect]

REACTIONS (5)
  - ANORECTAL DISORDER [None]
  - ASTHENIA [None]
  - MUSCULAR WEAKNESS [None]
  - SENSORY LOSS [None]
  - SYNCOPE [None]
